FAERS Safety Report 14176098 (Version 4)
Quarter: 2018Q4

REPORT INFORMATION
  Report Type: Spontaneous
  Country: CA (occurrence: CA)
  Receive Date: 20171109
  Receipt Date: 20181123
  Transmission Date: 20190204
  Serious: Yes (Other)
  Sender: FDA-Public Use
  Company Number: CA-PFIZER INC-2017385826

PATIENT
  Age: 66 Year
  Sex: Female

DRUGS (4)
  1. YELLOW FEVER VACCINE LIVE [Concomitant]
     Dosage: UNK
     Dates: start: 201801, end: 201801
  2. XELJANZ [Suspect]
     Active Substance: TOFACITINIB CITRATE
     Indication: RHEUMATOID ARTHRITIS
     Dosage: 5 MG, 2X/DAY
     Route: 048
     Dates: start: 20170802
  3. METHOTREXATE SODIUM. [Suspect]
     Active Substance: METHOTREXATE SODIUM
     Indication: RHEUMATOID ARTHRITIS
     Dosage: 20 MG, WEEKLY
  4. CELEBREX [Suspect]
     Active Substance: CELECOXIB
     Indication: RHEUMATOID ARTHRITIS
     Dosage: UNK, AS NEEDED

REACTIONS (9)
  - Gastrooesophageal reflux disease [Recovered/Resolved]
  - Urinary retention [Not Recovered/Not Resolved]
  - Diarrhoea [Recovered/Resolved]
  - Micturition urgency [Not Recovered/Not Resolved]
  - Flatulence [Unknown]
  - Drug effect decreased [Unknown]
  - Faeces hard [Unknown]
  - Condition aggravated [Unknown]
  - Pollakiuria [Recovering/Resolving]

NARRATIVE: CASE EVENT DATE: 201708
